FAERS Safety Report 9288487 (Version 3)
Quarter: 2013Q4

REPORT INFORMATION
  Report Type: Spontaneous
  Country: DK (occurrence: DK)
  Receive Date: 20130514
  Receipt Date: 20131209
  Transmission Date: 20140711
  Serious: Yes (Other)
  Sender: FDA-Public Use
  Company Number: PHHY2013DK045462

PATIENT
  Sex: 0

DRUGS (5)
  1. LEPONEX [Suspect]
     Indication: SCHIZOPHRENIA
     Dosage: STYRKE: 100 MG
     Route: 048
     Dates: start: 20130402, end: 20130417
  2. OLANZAPINE [Suspect]
     Indication: PSYCHOTIC DISORDER
     Dosage: STYRKE: 20 MG
     Route: 048
     Dates: start: 20120101, end: 20130418
  3. OLANZAPINE [Suspect]
     Dosage: 20 MG, UNKNOWN
     Route: 048
     Dates: start: 20120101, end: 20130418
  4. TRILAFON [Suspect]
     Indication: SCHIZOPHRENIA
     Dosage: STYRKE: 8 MG
     Route: 048
     Dates: start: 20120101, end: 20130418
  5. PERPHENAZINE ENANTATE [Concomitant]
     Dosage: UNK

REACTIONS (6)
  - Malaise [Recovered/Resolved]
  - Neuroleptic malignant syndrome [Recovered/Resolved]
  - Body temperature increased [Recovered/Resolved]
  - Dizziness [Recovered/Resolved]
  - Chills [Recovered/Resolved]
  - Feeling cold [Recovered/Resolved]
